FAERS Safety Report 8847376 (Version 2)
Quarter: 2012Q4

REPORT INFORMATION
  Report Type: 
  Country: US (occurrence: US)
  Receive Date: 20121018
  Receipt Date: 20121211
  Transmission Date: 20130627
  Serious: Yes (Other)
  Sender: FDA-Public Use
  Company Number: US-ELI_LILLY_AND_COMPANY-US201205006194

PATIENT
  Sex: Female

DRUGS (2)
  1. CYMBALTA [Suspect]
     Indication: MAJOR DEPRESSION
     Dosage: 80 mg, qd
     Route: 048
     Dates: start: 2010
  2. FLINTSTONES MULTIPLE VITAMINS [Concomitant]

REACTIONS (3)
  - Placenta praevia [Recovered/Resolved]
  - Exposure during pregnancy [Recovered/Resolved]
  - Premature baby [Recovered/Resolved with Sequelae]
